FAERS Safety Report 21218529 (Version 1)
Quarter: 2022Q3

REPORT INFORMATION
  Report Type: Spontaneous
  Country: US (occurrence: US)
  Receive Date: 20220816
  Receipt Date: 20220816
  Transmission Date: 20221027
  Serious: No
  Sender: FDA-Public Use
  Company Number: US-BIOMARINAP-US-2022-144694

PATIENT

DRUGS (1)
  1. BRINEURA [Suspect]
     Active Substance: CERLIPONASE ALFA
     Indication: Neuronal ceroid lipofuscinosis
     Dosage: 100 MILLIGRAM, QOW
     Route: 020
     Dates: start: 20220728

REACTIONS (1)
  - Device leakage [Recovered/Resolved]

NARRATIVE: CASE EVENT DATE: 20220729
